FAERS Safety Report 5244519-2 (Version None)
Quarter: 2007Q1

REPORT INFORMATION
  Report Type: 
  Country: None (occurrence: None)
  Receive Date: 20070222
  Receipt Date: 20070209
  Transmission Date: 20070707
  Serious: Yes (Hospitalization)
  Sender: FDA-Public Use
  Company Number: HQWYE764115SEP06

PATIENT
  Sex: Female
  Weight: 52 kg

DRUGS (11)
  1. ENBREL [Suspect]
     Indication: RHEUMATOID ARTHRITIS
     Route: 058
     Dates: start: 20050922
  2. AZULFIDINE [Concomitant]
     Indication: RHEUMATOID ARTHRITIS
     Route: 048
     Dates: start: 20060811, end: 20060921
  3. AZULFIDINE [Concomitant]
     Dosage: UNKNOWN
     Dates: start: 19960101
  4. OSTELUC [Concomitant]
     Indication: RHEUMATOID ARTHRITIS
     Route: 048
  5. GLAKAY [Concomitant]
     Route: 048
  6. MYTELASE [Concomitant]
     Route: 048
  7. BONALON [Concomitant]
     Route: 048
  8. ONE-ALPHA [Concomitant]
     Route: 048
  9. PREDNISOLONE [Concomitant]
     Indication: RHEUMATOID ARTHRITIS
     Route: 048
  10. PREDNISOLONE [Concomitant]
     Dosage: UNKNOWN
     Dates: start: 19960101
  11. NORVASC [Concomitant]
     Route: 048

REACTIONS (1)
  - PNEUMOCYSTIS JIROVECI PNEUMONIA [None]
